FAERS Safety Report 14182953 (Version 12)
Quarter: 2022Q2

REPORT INFORMATION
  Report Type: Spontaneous
  Country: BR (occurrence: BR)
  Receive Date: 20171113
  Receipt Date: 20220602
  Transmission Date: 20220721
  Serious: Yes (Hospitalization, Other)
  Sender: FDA-Public Use
  Company Number: BR-GLAXOSMITHKLINE-BR2017GSK111501

PATIENT

DRUGS (4)
  1. BENLYSTA [Suspect]
     Active Substance: BELIMUMAB
     Indication: Systemic lupus erythematosus
     Dosage: 580 MG, Z(EVERY 30 DAYS) 580 MG, UNK 5 AMPOLES OF 120 MG
     Route: 042
     Dates: start: 20170314
  2. PREDNISONE [Concomitant]
     Active Substance: PREDNISONE
     Indication: Product used for unknown indication
     Dosage: 3 DF (TABLET), QD (20 MG)
  3. CALCIUM [Concomitant]
     Active Substance: CALCIUM
     Indication: Product used for unknown indication
     Dosage: 1 DF, QD 1250 MG AFTER DINNER
  4. AZATHIOPRINE [Concomitant]
     Active Substance: AZATHIOPRINE
     Indication: Product used for unknown indication
     Dosage: 50 MG, BID

REACTIONS (39)
  - Meningitis [Recovered/Resolved]
  - Pain [Not Recovered/Not Resolved]
  - Pyrexia [Not Recovered/Not Resolved]
  - Systemic lupus erythematosus [Unknown]
  - Skin lesion [Unknown]
  - Migraine [Unknown]
  - Headache [Recovering/Resolving]
  - Condition aggravated [Not Recovered/Not Resolved]
  - Injury [Not Recovered/Not Resolved]
  - Weight decreased [Unknown]
  - Ill-defined disorder [Unknown]
  - Malaise [Recovered/Resolved]
  - Alopecia [Unknown]
  - Dermatitis allergic [Unknown]
  - Skin disorder [Unknown]
  - Skin exfoliation [Unknown]
  - Asthenia [Recovered/Resolved]
  - Skin discolouration [Not Recovered/Not Resolved]
  - Hypertension [Recovered/Resolved]
  - Somnolence [Unknown]
  - Pruritus [Not Recovered/Not Resolved]
  - Neck mass [Unknown]
  - Nodule [Unknown]
  - Osteoporosis [Unknown]
  - Hypersensitivity [Unknown]
  - Skin depigmentation [Not Recovered/Not Resolved]
  - Contusion [Unknown]
  - Overdose [Recovered/Resolved]
  - Underdose [Not Recovered/Not Resolved]
  - COVID-19 [Recovered/Resolved]
  - Anosmia [Recovered/Resolved]
  - Ageusia [Recovered/Resolved]
  - Dengue fever [Not Recovered/Not Resolved]
  - Influenza [Recovering/Resolving]
  - Feeling abnormal [Recovering/Resolving]
  - Incorrect dose administered [Unknown]
  - Inappropriate schedule of product administration [Unknown]
  - Product dose omission issue [Unknown]
  - Product supply issue [Unknown]

NARRATIVE: CASE EVENT DATE: 20211001
